FAERS Safety Report 4776301-4 (Version None)
Quarter: 2005Q3

REPORT INFORMATION
  Report Type: 
  Country: None (occurrence: None)
  Receive Date: 20050921
  Receipt Date: 20050913
  Transmission Date: 20060218
  Serious: Yes (Hospitalization)
  Sender: FDA-Public Use
  Company Number: TCI2005A03929

PATIENT
  Age: 76 Year
  Sex: Male

DRUGS (1)
  1. ACTOS [Suspect]
     Indication: DIABETES MELLITUS NON-INSULIN-DEPENDENT
     Dosage: PER ORAL
     Route: 048

REACTIONS (3)
  - ASCITES [None]
  - DIABETES MELLITUS INADEQUATE CONTROL [None]
  - GENERAL PHYSICAL HEALTH DETERIORATION [None]
